FAERS Safety Report 7261800-6 (Version None)
Quarter: 2011Q1

REPORT INFORMATION
  Report Type: 
  Country: None (occurrence: None)
  Receive Date: 20110130
  Receipt Date: 20101213
  Transmission Date: 20110831
  Serious: No
  Sender: FDA-Public Use
  Company Number: US-ABBOTT-10P-163-0690998-00

PATIENT
  Age: 17 Year
  Sex: Female

DRUGS (4)
  1. FORVIA VITAMINS [Concomitant]
     Indication: PRODUCT USED FOR UNKNOWN INDICATION
  2. MICROJESTIN [Concomitant]
     Indication: MUSCLE SPASMS
  3. HUMIRA [Suspect]
     Indication: CROHN'S DISEASE
     Dates: start: 20101110
  4. PENTASA [Concomitant]
     Indication: PRODUCT USED FOR UNKNOWN INDICATION

REACTIONS (6)
  - INJECTION SITE PAIN [None]
  - NASOPHARYNGITIS [None]
  - SPUTUM DISCOLOURED [None]
  - INJECTION SITE ERYTHEMA [None]
  - INJECTION SITE WARMTH [None]
  - INJECTION SITE PAPULE [None]
